FAERS Safety Report 14272850 (Version 1)
Quarter: 2017Q4

REPORT INFORMATION
  Report Type: Spontaneous
  Country: US (occurrence: US)
  Receive Date: 20171212
  Receipt Date: 20171212
  Transmission Date: 20180321
  Serious: Yes (Disabling)
  Sender: FDA-Public Use
  Company Number: None

PATIENT
  Sex: Male
  Weight: 18.45 kg

DRUGS (4)
  1. ALBUTEROL. [Concomitant]
     Active Substance: ALBUTEROL
  2. QVAR [Suspect]
     Active Substance: BECLOMETHASONE DIPROPIONATE
     Indication: ASTHMA
     Dosage: 1 PUFF TWICE A DAY; RESPIRATORY (INHALATION) ?          ?
     Route: 055
     Dates: start: 20170926, end: 20171015
  3. FLUORIDE [Concomitant]
     Active Substance: SODIUM FLUORIDE
  4. CHILDRENS GUMMY MULTIVITAMIN [Concomitant]

REACTIONS (3)
  - Aggression [None]
  - Insomnia [None]
  - Depression [None]

NARRATIVE: CASE EVENT DATE: 20171015
